FAERS Safety Report 6332842-X (Version None)
Quarter: 2009Q3

REPORT INFORMATION
  Report Type: 
  Country: None (occurrence: None)
  Receive Date: 20090828
  Receipt Date: 20090821
  Transmission Date: 20100115
  Serious: Yes (Hospitalization)
  Sender: FDA-Public Use
  Company Number: US-ABBOTT-07P-163-0419978-00

PATIENT
  Sex: Female
  Weight: 84.444 kg

DRUGS (8)
  1. HUMIRA [Suspect]
     Indication: RHEUMATOID ARTHRITIS
     Route: 058
     Dates: start: 20070501
  2. HUMIRA [Suspect]
     Indication: PSORIASIS
  3. AMBIEN [Concomitant]
     Indication: INSOMNIA
     Route: 048
  4. LEVAQUIN [Concomitant]
     Indication: PSORIASIS
     Route: 048
  5. LORTAB [Concomitant]
     Indication: PAIN
     Dosage: 5/325
     Route: 048
  6. DIPROLENE [Concomitant]
     Indication: PSORIASIS
     Route: 061
  7. PROTONIX [Concomitant]
     Indication: GASTROOESOPHAGEAL REFLUX DISEASE
     Route: 048
  8. ZETIA [Concomitant]
     Indication: BLOOD CHOLESTEROL
     Route: 048

REACTIONS (3)
  - DEPRESSION [None]
  - INCORRECT DOSE ADMINISTERED [None]
  - WRONG TECHNIQUE IN DRUG USAGE PROCESS [None]
